FAERS Safety Report 8529360-7 (Version None)
Quarter: 2012Q3

REPORT INFORMATION
  Report Type: 
  Country: None (occurrence: None)
  Receive Date: 20120723
  Receipt Date: 20120712
  Transmission Date: 20120928
  Serious: Yes (Other)
  Sender: FDA-Public Use
  Company Number: JP-JNJFOC-20120600663

PATIENT
  Sex: Male
  Weight: 49 kg

DRUGS (19)
  1. REMICADE [Suspect]
     Route: 042
     Dates: start: 20110705
  2. REMICADE [Suspect]
     Route: 042
     Dates: start: 20110512
  3. LEVOFLOXACIN [Concomitant]
     Dosage: DOSE: 500 DF
     Route: 048
     Dates: start: 20120418
  4. REMICADE [Suspect]
     Route: 042
     Dates: start: 20111122
  5. REMICADE [Suspect]
     Route: 042
     Dates: start: 20120117
  6. REMICADE [Suspect]
     Route: 042
     Dates: start: 20110120
  7. REMICADE [Suspect]
     Route: 042
     Dates: start: 20101001
  8. METHOTREXATE [Suspect]
     Indication: RHEUMATOID ARTHRITIS
     Route: 048
     Dates: start: 20110830, end: 20120423
  9. METHOTREXATE [Suspect]
     Route: 048
     Dates: start: 20091005, end: 20110829
  10. REMICADE [Suspect]
     Route: 042
     Dates: start: 20100903
  11. REMICADE [Suspect]
     Indication: RHEUMATOID ARTHRITIS
     Route: 042
     Dates: start: 20110317
  12. REMICADE [Suspect]
     Route: 042
     Dates: start: 20100820
  13. REMICADE [Suspect]
     Dosage: 14TH INFUSION
     Route: 042
     Dates: start: 20120312
  14. PROGRAF [Suspect]
     Indication: RHEUMATOID ARTHRITIS
     Route: 048
     Dates: start: 20111025, end: 20120423
  15. ISONIAZID [Concomitant]
     Indication: ANTIBIOTIC PROPHYLAXIS
     Route: 048
     Dates: start: 20100601, end: 20110101
  16. REMICADE [Suspect]
     Route: 042
     Dates: start: 20110927
  17. REMICADE [Suspect]
     Route: 042
     Dates: start: 20101125
  18. REMICADE [Suspect]
     Route: 042
     Dates: start: 20110802
  19. REMICADE [Suspect]
     Route: 042
     Dates: start: 20110830

REACTIONS (2)
  - NASOPHARYNGITIS [None]
  - TUBERCULOSIS [None]
